FAERS Safety Report 8517569-8 (Version None)
Quarter: 2012Q3

REPORT INFORMATION
  Report Type: 
  Country: None (occurrence: None)
  Receive Date: 20120718
  Receipt Date: 20120703
  Transmission Date: 20120928
  Serious: Yes (Life-Threatening, Other)
  Sender: FDA-Public Use
  Company Number: JP-ROCHE-1072171

PATIENT
  Sex: Female

DRUGS (9)
  1. PACLITAXEL [Suspect]
     Indication: BREAST CANCER METASTATIC
     Route: 042
     Dates: start: 20111220, end: 20120420
  2. FERROUS SULFATE TAB [Concomitant]
     Indication: ANAEMIA
     Route: 048
     Dates: start: 20111130, end: 20120514
  3. AVASTIN [Suspect]
     Indication: BREAST CANCER METASTATIC
     Route: 041
     Dates: start: 20120203, end: 20120420
  4. MIYA BM [Concomitant]
     Indication: PROPHYLAXIS
     Route: 048
     Dates: start: 20120120, end: 20120514
  5. RABEPRAZOLE SODIUM [Concomitant]
     Indication: PROPHYLAXIS
     Route: 048
     Dates: start: 20120120, end: 20120514
  6. VITANEURIN [Concomitant]
     Indication: PROPHYLAXIS
     Route: 048
     Dates: start: 20120217, end: 20120514
  7. LOPERAMIDE HYDROCHLORIDE [Concomitant]
     Indication: PROPHYLAXIS
     Dosage: TAKEN AS NEEDED
     Route: 048
  8. MUCOSTA [Concomitant]
     Indication: PROPHYLAXIS
     Dosage: TAKEN AS NEEDED
     Route: 048
  9. LOXONIN [Suspect]
     Indication: PAIN
     Dosage: WHEN NEEDED
     Route: 048
     Dates: start: 20120127

REACTIONS (7)
  - OEDEMA PERIPHERAL [None]
  - DUODENAL ULCER HAEMORRHAGE [None]
  - PLEURAL EFFUSION [None]
  - SHOCK [None]
  - GENITAL HERPES ZOSTER [None]
  - GASTRIC ULCER [None]
  - URINARY TRACT INFECTION [None]
